FAERS Safety Report 15333485 (Version 4)
Quarter: 2019Q3

REPORT INFORMATION
  Report Type: Report from Study
  Country: FI (occurrence: FI)
  Receive Date: 20180830
  Receipt Date: 20190729
  Transmission Date: 20191004
  Serious: Yes (Life-Threatening, Hospitalization, Other)
  Sender: FDA-Public Use
  Company Number: FI-AXELLIA-001902

PATIENT
  Age: 37 Year
  Sex: Male

DRUGS (15)
  1. TEMESTA [LORAZEPAM] [Suspect]
     Active Substance: LORAZEPAM
     Indication: ANXIETY
     Dosage: 0.5 MG, TID
     Route: 065
     Dates: start: 2007
  2. BISOPROACT [Concomitant]
     Active Substance: BISOPROLOL
     Dosage: UNK
     Route: 065
  3. MAGNESIUM ASPARTATE [Concomitant]
     Active Substance: MAGNESIUM ASPARTATE
     Dosage: UNK
     Route: 065
  4. CITALOPRAM [Suspect]
     Active Substance: CITALOPRAM HYDROBROMIDE
     Indication: OBSESSIVE-COMPULSIVE DISORDER
     Dosage: 20 MG, QD
     Route: 065
     Dates: start: 2006
  5. ANAFRANIL [Concomitant]
     Active Substance: CLOMIPRAMINE HYDROCHLORIDE
     Dosage: UNK
     Route: 065
  6. KALISOL [Concomitant]
     Dosage: UNK
     Route: 065
  7. LYRICA [Concomitant]
     Active Substance: PREGABALIN
     Dosage: UNK
     Route: 065
  8. PRIMASPAN [Concomitant]
     Active Substance: ASPIRIN
     Dosage: UNK
     Route: 065
  9. OLANZAPINE ORION [Concomitant]
     Active Substance: OLANZAPINE
     Dosage: UNK
     Route: 065
  10. ZYVOXID [Concomitant]
     Active Substance: LINEZOLID
     Dosage: UNK
     Route: 065
  11. VANCOMYCIN [Suspect]
     Active Substance: VANCOMYCIN
     Indication: INFECTION
     Dosage: UNK
     Route: 065
     Dates: start: 20180621, end: 20180712
  12. LEPONEX [Suspect]
     Active Substance: CLOZAPINE
     Indication: SCHIZOPHRENIA
     Dosage: UNK
     Dates: start: 20180710, end: 20180712
  13. LAPENAX [Suspect]
     Active Substance: CLOZAPINE
     Indication: SCHIZOPHRENIA
     Dosage: AT UNSPECIFIED DOSE FROM 10-JUL-2018 TO 12-JUL-2018,??300 MG, QD
     Route: 065
     Dates: start: 20180717, end: 2018
  14. KLEXANE [Concomitant]
     Active Substance: ENOXAPARIN
     Dosage: UNK
     Route: 065
  15. FLIXOTIDE EVOHALER [Concomitant]
     Active Substance: FLUTICASONE PROPIONATE
     Dosage: UNK
     Route: 065

REACTIONS (11)
  - Confusional state [Recovering/Resolving]
  - Mental impairment [Not Recovered/Not Resolved]
  - Neutropenia [Recovered/Resolved]
  - Tangentiality [Unknown]
  - Infection [Unknown]
  - Wound infection bacterial [Recovered/Resolved]
  - Incoherent [Unknown]
  - Renal injury [Recovered/Resolved]
  - Suicide attempt [Unknown]
  - Multiple fractures [Unknown]
  - Rhabdomyolysis [Recovered/Resolved]

NARRATIVE: CASE EVENT DATE: 2007
